FAERS Safety Report 4793446-3 (Version None)
Quarter: 2005Q4

REPORT INFORMATION
  Report Type: 
  Country: None (occurrence: None)
  Receive Date: 20051011
  Receipt Date: 20050119
  Transmission Date: 20060501
  Serious: No
  Sender: FDA-Public Use
  Company Number: US-BRISTOL-MYERS SQUIBB COMPANY-12830915

PATIENT
  Age: 53 Year
  Sex: Female
  Weight: 77 kg

DRUGS (5)
  1. GLUCOPHAGE XR [Suspect]
     Indication: DIABETES MELLITUS
     Route: 048
  2. ACTOSE [Concomitant]
  3. ZETIA [Concomitant]
  4. COZAAR [Concomitant]
  5. VITAMINS [Concomitant]

REACTIONS (2)
  - ANAL FISSURE [None]
  - PROCTALGIA [None]
